FAERS Safety Report 7801432-1 (Version None)
Quarter: 2011Q4

REPORT INFORMATION
  Report Type: 
  Country: None (occurrence: None)
  Receive Date: 20111006
  Receipt Date: 20111006
  Transmission Date: 20120403
  Serious: Yes (Hospitalization)
  Sender: FDA-Public Use
  Company Number: None

PATIENT
  Age: 71 Year
  Sex: Female
  Weight: 69.1 kg

DRUGS (6)
  1. TEGRETOL [Concomitant]
  2. VIT D [Concomitant]
  3. KLONOPIN [Concomitant]
  4. LITHIUM XR [Suspect]
     Indication: BIPOLAR DISORDER
     Dosage: 225MG/450 MG QHS + 9PM/9  M___ PO/PO CHRONIC
     Route: 048
  5. SYNTHROID [Concomitant]
  6. KLONOPIN [Concomitant]

REACTIONS (2)
  - TOXICITY TO VARIOUS AGENTS [None]
  - SPEECH DISORDER [None]
